FAERS Safety Report 9154723 (Version 1)
Quarter: 2013Q1

REPORT INFORMATION
  Report Type: Spontaneous
  Country: US (occurrence: US)
  Receive Date: 20130311
  Receipt Date: 20130311
  Transmission Date: 20140127
  Serious: Yes (Hospitalization, Other)
  Sender: FDA-Public Use
  Company Number: US-009507513-1303USA001872

PATIENT
  Age: 83 Year
  Sex: Female

DRUGS (15)
  1. SINGULAIR [Suspect]
     Dosage: 10 MG, UNK
     Route: 048
  2. SELBEX [Concomitant]
     Dosage: 0.5 MG, UNK
     Route: 048
  3. CINAL [Concomitant]
     Dosage: 1 G, UNK
     Route: 048
  4. FERROMIA [Concomitant]
     Dosage: 100 MG, UNK
     Route: 048
  5. DEXTROMETHORPHAN HYDROBROMIDE [Concomitant]
     Dosage: 90 MG, UNK
     Route: 048
  6. MAGMITT [Concomitant]
     Dosage: 990 MG, UNK
     Route: 048
  7. CAMOSTATE [Concomitant]
     Dosage: 300 MG, UNK
     Route: 048
  8. ALVESCO [Concomitant]
     Dosage: 200 UG, BID, INHALATION
  9. ALVESCO [Concomitant]
     Dosage: 400 UG, BID, INHALATION
     Route: 055
  10. KAKKON-TO [Concomitant]
     Indication: ASTHMA
  11. SYMBICORT [Concomitant]
     Indication: CHLOASMA
  12. FAMOTIDINE [Concomitant]
     Indication: CONSTIPATION
  13. ZANTAC [Concomitant]
     Indication: GASTRITIS
     Dosage: 300 MG, UNK
     Route: 048
  14. BYAKKO-KA-NINJIN-TO [Concomitant]
     Indication: IRON DEFICIENCY ANAEMIA
     Route: 048
  15. HOKUNALIN [Concomitant]
     Dosage: 1 G, UNK
     Route: 061

REACTIONS (5)
  - Stress cardiomyopathy [Unknown]
  - No therapeutic response [Unknown]
  - Myocardial infarction [Unknown]
  - Gastritis [Unknown]
  - Asthma [Unknown]
